FAERS Safety Report 16413053 (Version 2)
Quarter: 2019Q3

REPORT INFORMATION
  Report Type: Spontaneous
  Country: CO (occurrence: CO)
  Receive Date: 20190611
  Receipt Date: 20190731
  Transmission Date: 20191004
  Serious: Yes (Other)
  Sender: FDA-Public Use
  Company Number: CO-AMGEN-COLSP2019059054

PATIENT
  Age: 52 Year
  Sex: Female

DRUGS (4)
  1. ENBREL [Suspect]
     Active Substance: ETANERCEPT
     Indication: RHEUMATOID ARTHRITIS
     Dosage: 50 MILLIGRAM, QWK
     Route: 058
     Dates: start: 201806
  2. ENBREL [Suspect]
     Active Substance: ETANERCEPT
     Dosage: 50 MILLIGRAM, EVERY 15 DAYS
     Route: 058
  3. ENBREL [Suspect]
     Active Substance: ETANERCEPT
     Dosage: 50 MILLIGRAM, QWK
     Route: 058
     Dates: start: 201901
  4. ENBREL [Suspect]
     Active Substance: ETANERCEPT
     Dosage: 50 MILLIGRAM, QWK
     Route: 058
     Dates: start: 20190529

REACTIONS (17)
  - Malaise [Unknown]
  - Hepatic pain [Unknown]
  - Pulmonary pain [Unknown]
  - Memory impairment [Unknown]
  - Headache [Unknown]
  - Dyspnoea [Unknown]
  - Pain [Unknown]
  - Condition aggravated [Unknown]
  - Off label use [Unknown]
  - Oropharyngeal pain [Unknown]
  - Renal pain [Unknown]
  - Chills [Unknown]
  - Inflammation [Unknown]
  - Lung disorder [Unknown]
  - Rheumatoid arthritis [Unknown]
  - Injection site pain [Not Recovered/Not Resolved]
  - Pyrexia [Unknown]

NARRATIVE: CASE EVENT DATE: 201810
